FAERS Safety Report 5497456-2 (Version None)
Quarter: 2007Q4

REPORT INFORMATION
  Report Type: 
  Country: None (occurrence: None)
  Receive Date: 20071025
  Receipt Date: 20070102
  Transmission Date: 20080405
  Serious: No
  Sender: FDA-Public Use
  Company Number: A0627815A

PATIENT
  Sex: Female

DRUGS (8)
  1. ADVAIR DISKUS 100/50 [Suspect]
     Indication: CHRONIC OBSTRUCTIVE PULMONARY DISEASE
     Dosage: 1SPR TWICE PER DAY
     Route: 055
     Dates: start: 20051101
  2. ALBUTEROL [Concomitant]
  3. PRILOSEC [Concomitant]
  4. LOPID [Concomitant]
  5. GLIPIZIDE [Concomitant]
  6. IBUPROFEN [Concomitant]
  7. ZANTAC [Concomitant]
  8. UNKNOWN MEDICATION [Concomitant]

REACTIONS (2)
  - DRUG INEFFECTIVE [None]
  - PHARMACEUTICAL PRODUCT COMPLAINT [None]
